FAERS Safety Report 19596427 (Version 2)
Quarter: 2022Q3

REPORT INFORMATION
  Report Type: Spontaneous
  Country: US (occurrence: None)
  Receive Date: 20210723
  Receipt Date: 20220824
  Transmission Date: 20221026
  Serious: No
  Sender: FDA-Public Use
  Company Number: US-EMMAUS MEDICAL, INC.-EMM202107-000101

PATIENT
  Sex: Female

DRUGS (3)
  1. ENDARI [Suspect]
     Active Substance: GLUTAMINE
     Indication: Sickle cell anaemia
     Route: 048
     Dates: start: 20210324
  2. ENDARI [Suspect]
     Active Substance: GLUTAMINE
     Route: 048
  3. ENDARI [Suspect]
     Active Substance: GLUTAMINE
     Route: 048

REACTIONS (1)
  - Treatment noncompliance [Unknown]
